FAERS Safety Report 17973344 (Version 2)
Quarter: 2020Q3

REPORT INFORMATION
  Report Type: Spontaneous
  Country: JP (occurrence: JP)
  Receive Date: 20200702
  Receipt Date: 20200728
  Transmission Date: 20201103
  Serious: Yes (Death, Life-Threatening, Hospitalization, Other)
  Sender: FDA-Public Use
  Company Number: JP-009507513-2002JPN001421J

PATIENT
  Age: 59 Year
  Sex: Male
  Weight: 64 kg

DRUGS (10)
  1. CARBOPLATIN. [Suspect]
     Active Substance: CARBOPLATIN
     Dosage: UNK
     Route: 065
     Dates: start: 2020, end: 2020
  2. ALIMTA [Suspect]
     Active Substance: PEMETREXED DISODIUM
     Indication: NON-SMALL CELL LUNG CANCER
     Dosage: 850 MILLIGRAM, EVERY 4 WEEKS
     Route: 041
     Dates: start: 20190604, end: 20190828
  3. LANSOPRAZOLE. [Concomitant]
     Active Substance: LANSOPRAZOLE
     Indication: ANALGESIC INTERVENTION SUPPORTIVE THERAPY
     Dosage: 15 (UNIT NOT REPORTED), QD
     Route: 048
     Dates: start: 20190604
  4. KEYTRUDA [Suspect]
     Active Substance: PEMBROLIZUMAB
     Indication: NON-SMALL CELL LUNG CANCER
     Dosage: 200 MILLIGRAM, EVERY 4 WEEKS
     Route: 041
     Dates: start: 20190604, end: 20190828
  5. CARBOPLATIN. [Suspect]
     Active Substance: CARBOPLATIN
     Indication: NON-SMALL CELL LUNG CANCER
     Dosage: 750 MILLIGRAM, EVERY 4 WEEKS
     Route: 041
     Dates: start: 20190604, end: 20190828
  6. MAGNESIUM SULFATE. [Concomitant]
     Active Substance: MAGNESIUM SULFATE
     Indication: CONSTIPATION
     Dosage: 500 (UNIT NOT REPORTED), BID
     Route: 048
     Dates: start: 20190507
  7. LOXOPROFEN [Concomitant]
     Active Substance: LOXOPROFEN
     Indication: PAIN
     Dosage: 60 (UNIT NOT REPORTED), TID
     Route: 048
     Dates: start: 20190604, end: 20190703
  8. SENNOSIDE [Concomitant]
     Active Substance: SENNOSIDES
     Indication: CONSTIPATION
     Dosage: 24 (UNIT NOT REPORTED), QD
     Route: 048
     Dates: start: 20190507
  9. PANVITAN [Concomitant]
     Active Substance: VITAMINS
     Indication: NUTRITIONAL SUPPLEMENTATION
     Dosage: 1 GRAM, QD
     Route: 048
     Dates: start: 20190514
  10. ACETAMINOPHEN. [Concomitant]
     Active Substance: ACETAMINOPHEN
     Indication: PAIN
     Dosage: 600 (UNIT NOT REPORTED), TID
     Route: 048
     Dates: start: 20190703

REACTIONS (5)
  - Interstitial lung disease [Fatal]
  - Rash [Recovered/Resolved]
  - Interstitial lung disease [Not Recovered/Not Resolved]
  - Malignant neoplasm progression [Unknown]
  - Off label use [Unknown]

NARRATIVE: CASE EVENT DATE: 20190604
